FAERS Safety Report 9921105 (Version 2)
Quarter: 2014Q1

REPORT INFORMATION
  Report Type: Spontaneous
  Country: US (occurrence: US)
  Receive Date: 20140225
  Receipt Date: 20140225
  Transmission Date: 20141002
  Serious: Yes (Disabling)
  Sender: FDA-Public Use
  Company Number: US-GE HEALTHCARE MEDICAL DIAGNOSTICS-OSCN-PR-0806S-0440

PATIENT
  Sex: Male

DRUGS (2)
  1. OMNISCAN [Suspect]
     Indication: AORTIC DISSECTION
     Route: 042
     Dates: start: 20040625, end: 20040625
  2. OMNISCAN [Suspect]
     Indication: AORTIC DISSECTION
     Route: 042
     Dates: start: 20040826, end: 20040826

REACTIONS (1)
  - Nephrogenic systemic fibrosis [Not Recovered/Not Resolved]
